FAERS Safety Report 23567411 (Version 3)
Quarter: 2024Q2

REPORT INFORMATION
  Report Type: Spontaneous
  Country: GR (occurrence: GR)
  Receive Date: 20240226
  Receipt Date: 20240419
  Transmission Date: 20240715
  Serious: Yes (Hospitalization, Other)
  Sender: FDA-Public Use
  Company Number: GR-002147023-NVSC2024GR039745

PATIENT
  Age: 38 Year
  Sex: Male

DRUGS (1)
  1. COSENTYX [Suspect]
     Active Substance: SECUKINUMAB
     Indication: Psoriasis
     Dosage: 300 MG, Q4W
     Route: 058
     Dates: start: 2020

REACTIONS (11)
  - Abdominal discomfort [Unknown]
  - Flatulence [Unknown]
  - Fatigue [Unknown]
  - Weight decreased [Unknown]
  - Lymphadenopathy [Unknown]
  - Adenocarcinoma of colon [Not Recovered/Not Resolved]
  - Adenocarcinoma of colon [Not Recovered/Not Resolved]
  - Metastases to liver [Unknown]
  - Intestinal ulcer [Unknown]
  - Dysplasia [Unknown]
  - Transaminases increased [Unknown]

NARRATIVE: CASE EVENT DATE: 20240201
